FAERS Safety Report 8915901 (Version 2)
Quarter: 2012Q4

REPORT INFORMATION
  Report Type: 
  Country: JP (occurrence: JP)
  Receive Date: 20121119
  Receipt Date: 20121127
  Transmission Date: 20130627
  Serious: Yes (Other)
  Sender: FDA-Public Use
  Company Number: JP-PFIZER INC-2012285697

PATIENT

DRUGS (1)
  1. DETRUSITOL [Suspect]
     Dosage: UNK
     Route: 048

REACTIONS (1)
  - Lung disorder [Unknown]
